FAERS Safety Report 5592391-3 (Version None)
Quarter: 2008Q1

REPORT INFORMATION
  Report Type: 
  Country: None (occurrence: None)
  Receive Date: 20080115
  Receipt Date: 20080107
  Transmission Date: 20080703
  Serious: Yes (Death)
  Sender: FDA-Public Use
  Company Number: DE-GENENTECH-254037

PATIENT
  Age: 62 Year
  Sex: Male

DRUGS (4)
  1. AVASTIN [Suspect]
     Indication: COLORECTAL CANCER METASTATIC
     Dosage: 5 MG/KG, UNK
     Route: 042
  2. IRINOTECAN [Concomitant]
     Indication: COLON CANCER METASTATIC
     Dosage: 50 MG/M2, UNK
     Route: 042
  3. FOLINIC ACID [Concomitant]
     Indication: COLON CANCER METASTATIC
     Dosage: 400 MG/M2, UNK
     Route: 042
  4. FLUOROURACIL [Concomitant]
     Indication: COLON CANCER METASTATIC
     Dosage: 1400 MG/M2, UNK
     Route: 042

REACTIONS (2)
  - RENAL FAILURE ACUTE [None]
  - TUMOUR LYSIS SYNDROME [None]
